FAERS Safety Report 25673563 (Version 1)
Quarter: 2025Q3

REPORT INFORMATION
  Report Type: Spontaneous
  Country: US (occurrence: US)
  Receive Date: 20250813
  Receipt Date: 20250813
  Transmission Date: 20251020
  Serious: Yes (Other)
  Sender: JOHNSON AND JOHNSON
  Company Number: US-JNJFOC-20250802983

PATIENT
  Age: 19 Year
  Sex: Female

DRUGS (1)
  1. REMICADE [Suspect]
     Active Substance: INFLIXIMAB
     Indication: Crohn^s disease
     Route: 041
     Dates: start: 2025, end: 20250228

REACTIONS (6)
  - Respiratory arrest [Recovered/Resolved]
  - Infusion related reaction [Unknown]
  - Burning sensation [Unknown]
  - Swollen tongue [Unknown]
  - Chest pain [Unknown]
  - Erythema [Unknown]

NARRATIVE: CASE EVENT DATE: 20250101
